FAERS Safety Report 4988066-1 (Version None)
Quarter: 2006Q2

REPORT INFORMATION
  Report Type: 
  Country: None (occurrence: None)
  Receive Date: 20060425
  Receipt Date: 20060410
  Transmission Date: 20061013
  Serious: Yes (Death, Hospitalization)
  Sender: FDA-Public Use
  Company Number: 2006049476

PATIENT
  Age: 65 Year
  Sex: Male

DRUGS (2)
  1. METHYLPREDNISOLONE [Suspect]
     Indication: ILL-DEFINED DISORDER
     Dosage: 8 MG (UNK, 1 D), UNKNOWN
     Route: 065
  2. INTERFERON (INTERFERON) [Concomitant]

REACTIONS (6)
  - BLOOD CALCIUM DECREASED [None]
  - BLOOD URIC ACID DECREASED [None]
  - HYPOXIA [None]
  - MULTI-ORGAN FAILURE [None]
  - RENAL FAILURE [None]
  - TUMOUR LYSIS SYNDROME [None]
